FAERS Safety Report 6909893-7 (Version None)
Quarter: 2010Q3

REPORT INFORMATION
  Report Type: 
  Country: None (occurrence: None)
  Receive Date: 20100806
  Receipt Date: 20100729
  Transmission Date: 20110219
  Serious: No
  Sender: FDA-Public Use
  Company Number: US-BIOGENIDEC-2010BI026443

PATIENT
  Age: 46 Year
  Sex: Male

DRUGS (1)
  1. TYSABRI [Suspect]
     Indication: MULTIPLE SCLEROSIS
     Route: 042
     Dates: start: 20100219

REACTIONS (6)
  - APATHY [None]
  - ASTHENIA [None]
  - MOOD SWINGS [None]
  - MUSCULAR WEAKNESS [None]
  - NERVOUSNESS [None]
  - PARAESTHESIA [None]
